FAERS Safety Report 23748357 (Version 2)
Quarter: 2024Q4

REPORT INFORMATION
  Report Type: Spontaneous
  Country: JP (occurrence: JP)
  Receive Date: 20240416
  Receipt Date: 20241015
  Transmission Date: 20250115
  Serious: Yes (Congenital Anomaly, Other)
  Sender: BRISTOL-MYERS SQUIBB COMPANY
  Company Number: JP-BRISTOL-MYERS SQUIBB COMPANY-2024-058513

PATIENT
  Age: 81 Year
  Sex: Male
  Weight: 61 kg

DRUGS (8)
  1. ABRAXANE [Suspect]
     Active Substance: PACLITAXEL
     Indication: Non-small cell lung cancer
     Dates: start: 20230629, end: 20231017
  2. ABRAXANE [Suspect]
     Active Substance: PACLITAXEL
     Dates: start: 20230926, end: 20230926
  3. ABRAXANE [Suspect]
     Active Substance: PACLITAXEL
     Dates: start: 20230629, end: 20230829
  4. CARBOPLATIN [Suspect]
     Active Substance: CARBOPLATIN
     Indication: Non-small cell lung cancer
     Dates: start: 20230629, end: 20230829
  5. CARBOPLATIN [Suspect]
     Active Substance: CARBOPLATIN
     Dates: start: 20230629, end: 20230926
  6. CARBOPLATIN [Suspect]
     Active Substance: CARBOPLATIN
     Dates: start: 20230926, end: 20230926
  7. DURVALUMAB [Suspect]
     Active Substance: DURVALUMAB
     Indication: Non-small cell lung cancer
     Route: 041
     Dates: start: 20230629, end: 20231121
  8. TREMELIMUMAB [Suspect]
     Active Substance: TREMELIMUMAB
     Indication: Non-small cell lung cancer
     Route: 041
     Dates: start: 20230629, end: 20231121

REACTIONS (3)
  - Neutrophil count decreased [Recovered/Resolved]
  - Hypothyroidism [Recovering/Resolving]
  - Adrenal insufficiency [Recovering/Resolving]

NARRATIVE: CASE EVENT DATE: 20230828
